FAERS Safety Report 8888418 (Version 1)
Quarter: 2012Q4

REPORT INFORMATION
  Report Type: 
  Country: US (occurrence: US)
  Receive Date: 20121106
  Receipt Date: 20121106
  Transmission Date: 20130627
  Serious: Yes (Death)
  Sender: FDA-Public Use
  Company Number: PHEH2012US015393

PATIENT
  Age: 84 None
  Sex: Male
  Weight: 87 kg

DRUGS (3)
  1. EXJADE [Suspect]
     Indication: IRON OVERLOAD
     Dosage: 500 mg, BID
     Route: 048
     Dates: start: 20120410
  2. EXJADE [Suspect]
     Indication: CHRONIC MYELOID LEUKAEMIA
     Dosage: 500 mg, QD
     Route: 048
     Dates: start: 20120522
  3. EXJADE [Suspect]
     Dosage: 1000 mg, QD
     Route: 048

REACTIONS (3)
  - Cardiac failure [Fatal]
  - Leukaemia [Fatal]
  - Diarrhoea [Recovered/Resolved]
